FAERS Safety Report 8153987-8 (Version None)
Quarter: 2012Q1

REPORT INFORMATION
  Report Type: 
  Country: None (occurrence: None)
  Receive Date: 20120221
  Receipt Date: 20120221
  Transmission Date: 20120608
  Serious: Yes (Other)
  Sender: FDA-Public Use
  Company Number: None

PATIENT
  Age: 38 Year
  Sex: Female
  Weight: 117.93 kg

DRUGS (1)
  1. CEFUROXIME AXETIL [Suspect]
     Indication: SINUSITIS
     Dosage: ONE TABLET
     Route: 048
     Dates: start: 20111229, end: 20111229

REACTIONS (5)
  - ABDOMINAL PAIN UPPER [None]
  - DIARRHOEA [None]
  - URTICARIA [None]
  - VOMITING [None]
  - PAIN [None]
